FAERS Safety Report 8000268-9 (Version None)
Quarter: 2011Q4

REPORT INFORMATION
  Report Type: 
  Country: None (occurrence: None)
  Receive Date: 20111222
  Receipt Date: 20111221
  Transmission Date: 20120403
  Serious: Yes (Hospitalization)
  Sender: FDA-Public Use
  Company Number: SK-BAYER-2011-122528

PATIENT

DRUGS (7)
  1. LAGOSA [Concomitant]
     Indication: HEPATIC NEOPLASM MALIGNANT
     Dosage: DAILY DOSE 500 MG
     Dates: start: 20100505
  2. AGAPURIN RETARD [Concomitant]
  3. NOLIPREL [INDAPAMIDE,PERINDOPRIL ERBUMINE] [Concomitant]
     Dosage: UNK
  4. SORAFENIB (RAF KINASE INHIBITOR) [Suspect]
     Indication: HEPATIC NEOPLASM MALIGNANT
  5. CORONAL [Concomitant]
     Dosage: DAILY DOSE 5 MG
     Dates: start: 20000101
  6. URSO FALK [Concomitant]
     Indication: HEPATIC NEOPLASM MALIGNANT
     Dosage: UNK
     Dates: start: 20100505
  7. FUROSEMIDE [Concomitant]
     Indication: HEPATIC NEOPLASM MALIGNANT
     Dosage: DAILY DOSE 40 MG
     Dates: start: 20100505

REACTIONS (1)
  - CELLULITIS [None]
